FAERS Safety Report 5035346-X (Version None)
Quarter: 2006Q2

REPORT INFORMATION
  Report Type: 
  Country: None (occurrence: None)
  Receive Date: 20060523
  Receipt Date: 20050429
  Transmission Date: 20061013
  Serious: Yes (Other)
  Sender: FDA-Public Use
  Company Number: 0504-186

PATIENT
  Age: 60 Year
  Sex: Female
  Weight: 104.3273 kg

DRUGS (1)
  1. DUONEB [Suspect]
     Indication: ASTHMA
     Dosage: 1 AMPULE EVERY 4 HRS.

REACTIONS (1)
  - EPISTAXIS [None]
